FAERS Safety Report 20761052 (Version 18)
Quarter: 2025Q2

REPORT INFORMATION
  Report Type: Report from Study
  Country: US (occurrence: US)
  Receive Date: 20220428
  Receipt Date: 20250401
  Transmission Date: 20250717
  Serious: Yes (Hospitalization, Other)
  Sender: TAKEDA
  Company Number: US-TAKEDA-2021TUS022373

PATIENT
  Age: 45 Year
  Sex: Female
  Weight: 80 kg

DRUGS (44)
  1. HUMAN IMMUNOGLOBULIN G [Suspect]
     Active Substance: HUMAN IMMUNOGLOBULIN G
     Indication: Polyneuropathy
  2. HUMAN IMMUNOGLOBULIN G [Suspect]
     Active Substance: HUMAN IMMUNOGLOBULIN G
     Indication: Sarcoidosis
     Dosage: 30 GRAM, Q2WEEKS
     Dates: start: 20220209
  3. HUMAN IMMUNOGLOBULIN G [Suspect]
     Active Substance: HUMAN IMMUNOGLOBULIN G
     Indication: Radiculopathy
     Dosage: 30 GRAM, Q2WEEKS
     Dates: start: 20220309
  4. HUMAN IMMUNOGLOBULIN G [Suspect]
     Active Substance: HUMAN IMMUNOGLOBULIN G
  5. HUMAN IMMUNOGLOBULIN G [Suspect]
     Active Substance: HUMAN IMMUNOGLOBULIN G
     Dosage: 30 GRAM, BID
  6. HUMAN IMMUNOGLOBULIN G [Suspect]
     Active Substance: HUMAN IMMUNOGLOBULIN G
     Dosage: 30 GRAM, 1/WEEK
     Dates: start: 20231218
  7. HUMAN IMMUNOGLOBULIN G [Suspect]
     Active Substance: HUMAN IMMUNOGLOBULIN G
     Dosage: 30 GRAM, 1/WEEK
  8. MIRTAZAPINE [Suspect]
     Active Substance: MIRTAZAPINE
     Indication: Product used for unknown indication
  9. ACETAMINOPHEN [Concomitant]
     Active Substance: ACETAMINOPHEN
  10. DIPHENHYDRAMINE HYDROCHLORIDE [Concomitant]
     Active Substance: DIPHENHYDRAMINE HYDROCHLORIDE
  11. SODIUM CHLORIDE [Concomitant]
     Active Substance: SODIUM CHLORIDE
  12. SODIUM CHLORIDE [Concomitant]
     Active Substance: SODIUM CHLORIDE
  13. PROCHLORPERAZINE [Concomitant]
     Active Substance: PROCHLORPERAZINE
  14. ADRENALIN [Concomitant]
     Active Substance: EPINEPHRINE
  15. COMPAZINE [Concomitant]
     Active Substance: PROCHLORPERAZINE MALEATE
  16. EPINEPHRINE [Concomitant]
     Active Substance: EPINEPHRINE
  17. Lmx [Concomitant]
  18. Solu-cortef mix o [Concomitant]
  19. BACLOFEN [Concomitant]
     Active Substance: BACLOFEN
  20. TRULICITY [Concomitant]
     Active Substance: DULAGLUTIDE
  21. EMGALITY [Concomitant]
     Active Substance: GALCANEZUMAB-GNLM
  22. KETOROLAC TROMETHAMINE [Concomitant]
     Active Substance: KETOROLAC TROMETHAMINE
  23. CLONAZEPAM [Concomitant]
     Active Substance: CLONAZEPAM
  24. CYCLOBENZAPRINE [Concomitant]
     Active Substance: CYCLOBENZAPRINE
  25. PERCOCET [Concomitant]
     Active Substance: ACETAMINOPHEN\OXYCODONE HYDROCHLORIDE
  26. LISINOPRIL [Concomitant]
     Active Substance: LISINOPRIL
  27. METFORMIN HYDROCHLORIDE [Concomitant]
     Active Substance: METFORMIN HYDROCHLORIDE
  28. POTASSIUM [Concomitant]
     Active Substance: POTASSIUM
  29. FOLIC ACID [Concomitant]
     Active Substance: FOLIC ACID
  30. GABAPENTIN [Concomitant]
     Active Substance: GABAPENTIN
  31. FUROSEMIDE [Concomitant]
     Active Substance: FUROSEMIDE
  32. BIOTIN [Concomitant]
     Active Substance: BIOTIN
  33. HEPARIN [Concomitant]
     Active Substance: HEPARIN SODIUM
  34. ZYRTEC [Concomitant]
     Active Substance: CETIRIZINE HYDROCHLORIDE
  35. RIZATRIPTAN [Concomitant]
     Active Substance: RIZATRIPTAN
  36. TAMSULOSIN [Concomitant]
     Active Substance: TAMSULOSIN
  37. TOPAMAX [Concomitant]
     Active Substance: TOPIRAMATE
  38. AZELAIC ACID [Concomitant]
     Active Substance: AZELAIC ACID
  39. LEVOFLOXACIN [Concomitant]
     Active Substance: LEVOFLOXACIN
  40. OZEMPIC [Concomitant]
     Active Substance: SEMAGLUTIDE
  41. LIDOCAINE [Concomitant]
     Active Substance: LIDOCAINE
  42. DEXAMETHASONE [Concomitant]
     Active Substance: DEXAMETHASONE
  43. CYCLOBENZAPRINE HYDROCHLORIDE [Concomitant]
     Active Substance: CYCLOBENZAPRINE HYDROCHLORIDE
  44. KETOROLAC [Concomitant]
     Active Substance: KETOROLAC TROMETHAMINE

REACTIONS (27)
  - Neuropathy peripheral [Unknown]
  - Illness [Unknown]
  - Anxiety [Unknown]
  - Myopathy [Unknown]
  - Fall [Unknown]
  - Rubber sensitivity [Unknown]
  - Gastrointestinal infection [Unknown]
  - Mobility decreased [Unknown]
  - Off label use [Unknown]
  - Product use issue [Unknown]
  - Product dose omission issue [Unknown]
  - Inappropriate schedule of product administration [Unknown]
  - Needle issue [Unknown]
  - Nervousness [Unknown]
  - Weight increased [Unknown]
  - Ear pain [Not Recovered/Not Resolved]
  - Sinusitis [Unknown]
  - Feeling abnormal [Unknown]
  - Lymphadenopathy [Unknown]
  - Rash [Recovered/Resolved]
  - Muscle spasms [Unknown]
  - Influenza like illness [Unknown]
  - Malaise [Unknown]
  - Hyperhidrosis [Unknown]
  - Vomiting [Unknown]
  - Back pain [Unknown]
  - Nausea [Unknown]

NARRATIVE: CASE EVENT DATE: 20220209
